FAERS Safety Report 5765488-2 (Version None)
Quarter: 2008Q2

REPORT INFORMATION
  Report Type: 
  Country: None (occurrence: None)
  Receive Date: 20080611
  Receipt Date: 20080529
  Transmission Date: 20081010
  Serious: Yes (Hospitalization)
  Sender: FDA-Public Use
  Company Number: B0522859A

PATIENT
  Age: 91 Year
  Sex: Female

DRUGS (4)
  1. AUGMENTIN '125' [Suspect]
     Indication: LUNG INFECTION
     Dosage: 1G THREE TIMES PER DAY
     Route: 042
     Dates: start: 20080410, end: 20080415
  2. OFLOCET [Suspect]
     Indication: LUNG INFECTION
     Dosage: 200MG TWICE PER DAY
     Route: 048
     Dates: start: 20080412, end: 20080415
  3. HYPERIUM [Concomitant]
     Indication: DRUG USE FOR UNKNOWN INDICATION
     Dosage: 1TAB PER DAY
     Route: 048
  4. FENOFIBRATE [Concomitant]
     Indication: DRUG USE FOR UNKNOWN INDICATION
     Dosage: 1TAB PER DAY
     Route: 048

REACTIONS (4)
  - ANAEMIA [None]
  - LEUKOPENIA [None]
  - LYMPHOCYTE COUNT DECREASED [None]
  - NEUTROPENIA [None]
